FAERS Safety Report 8880447 (Version 4)
Quarter: 2014Q1

REPORT INFORMATION
  Report Type: Report from Study
  Country: US (occurrence: US)
  Receive Date: 20121101
  Receipt Date: 20140303
  Transmission Date: 20141002
  Serious: No
  Sender: FDA-Public Use
  Company Number: US-VERTEX PHARMACEUTICAL INC.-2012-023840

PATIENT
  Age: 50 Year
  Sex: Female
  Weight: 52.61 kg

DRUGS (4)
  1. VX-770 [Suspect]
     Indication: CYSTIC FIBROSIS
     Dosage: 150 MG/TWICE/WEEK
     Dates: start: 20121005, end: 20121031
  2. VX-770 [Suspect]
     Dosage: UNK
     Dates: start: 20140129, end: 20140207
  3. CYCLOSPORINE [Concomitant]
  4. KETOCONAZOLE [Concomitant]

REACTIONS (2)
  - Blood creatine increased [Unknown]
  - Renal impairment [Unknown]
